FAERS Safety Report 16163342 (Version 1)
Quarter: 2019Q2

REPORT INFORMATION
  Report Type: Spontaneous
  Country: US (occurrence: US)
  Receive Date: 20190304
  Receipt Date: 20190304
  Transmission Date: 20190711
  Serious: Yes (Hospitalization)
  Sender: FDA-Public Use
  Company Number: None

PATIENT
  Sex: Male

DRUGS (13)
  1. OMEPRAZOLE. [Concomitant]
     Active Substance: OMEPRAZOLE
  2. ESBRIET [Suspect]
     Active Substance: PIRFENIDONE
     Indication: IDIOPATHIC PULMONARY FIBROSIS
     Dosage: ?          OTHER FREQUENCY:TID;?
     Route: 048
     Dates: start: 20170113
  3. A-HYDROCORT [Concomitant]
     Active Substance: HYDROCORTISONE SODIUM SUCCINATE
  4. AZITHROMYCIN ANHYDROUS. [Concomitant]
     Active Substance: AZITHROMYCIN ANHYDROUS
  5. METOPROLOL TARTRATE. [Concomitant]
     Active Substance: METOPROLOL TARTRATE
  6. BRIMONIDINE [Concomitant]
     Active Substance: BRIMONIDINE TARTRATE
  7. OFLOXACI [Concomitant]
  8. CIPROFLOXACIN. [Concomitant]
     Active Substance: CIPROFLOXACIN
  9. SERTRALINE [Concomitant]
     Active Substance: SERTRALINE HYDROCHLORIDE
  10. PREDNISOLONE. [Concomitant]
     Active Substance: PREDNISOLONE
  11. FLUOCIN ACET [Concomitant]
  12. ATORVASTATIN [Concomitant]
     Active Substance: ATORVASTATIN
  13. SUC [Concomitant]

REACTIONS (3)
  - Fatigue [None]
  - Therapy cessation [None]
  - Hospitalisation [None]
